FAERS Safety Report 22273072 (Version 2)
Quarter: 2023Q2

REPORT INFORMATION
  Report Type: Spontaneous
  Country: NO (occurrence: NO)
  Receive Date: 20230502
  Receipt Date: 20230511
  Transmission Date: 20230722
  Serious: Yes (Hospitalization)
  Sender: FDA-Public Use
  Company Number: None

PATIENT
  Age: 55 Year
  Sex: Female

DRUGS (2)
  1. ERELZI [Suspect]
     Active Substance: ETANERCEPT-SZZS
     Indication: Arthritis reactive
     Dosage: 50 MG, QW
     Route: 058
     Dates: start: 20230130, end: 20230220
  2. PREDNISOLONE [Concomitant]
     Active Substance: PREDNISOLONE
     Indication: Arthritis reactive
     Dosage: UNK (FLUCTUATING: BETWEEN 0 TO 15 MG ONCE EVERY DAY.CONTINUED USE OF MEDICINAL PRODUCT)
     Route: 065
     Dates: start: 20230103

REACTIONS (1)
  - Panniculitis [Recovering/Resolving]

NARRATIVE: CASE EVENT DATE: 20230220
